FAERS Safety Report 9220458 (Version 1)
Quarter: 2013Q1

REPORT INFORMATION
  Report Type: Spontaneous
  Country: US (occurrence: None)
  Receive Date: 20120830
  Receipt Date: 20120830
  Transmission Date: 20140127
  Serious: Yes (Other)
  Sender: FDA-Public Use
  Company Number: PHEH2012US010647

PATIENT
  Sex: Male

DRUGS (1)
  1. SANDOSTATIN LAR DEPOT (OCTREOTIDE WITH POLY (D L-LACTIDE-CO-GLYCOLIDE)) SUSPENSION [Suspect]
     Indication: CARCINOID TUMOUR
     Route: 030

REACTIONS (4)
  - Neoplasm progression [None]
  - Hepatic lesion [None]
  - Hot flush [None]
  - Diarrhoea [None]
